FAERS Safety Report 12966820 (Version 2)
Quarter: 2016Q4

REPORT INFORMATION
  Report Type: Spontaneous
  Country: IT (occurrence: IT)
  Receive Date: 20161123
  Receipt Date: 20161128
  Transmission Date: 20170207
  Serious: Yes (Hospitalization, Other)
  Sender: FDA-Public Use
  Company Number: IT-BRISTOL-MYERS SQUIBB COMPANY-BMS-2016-097277

PATIENT
  Age: 66 Year
  Sex: Male

DRUGS (1)
  1. DASATINIB [Suspect]
     Active Substance: DASATINIB
     Indication: CHRONIC MYELOID LEUKAEMIA
     Dosage: 10 MG, QD
     Route: 048

REACTIONS (3)
  - Pleural effusion [Recovering/Resolving]
  - Thoracic cavity drainage [Unknown]
  - Off label use [Unknown]

NARRATIVE: CASE EVENT DATE: 20161014
